FAERS Safety Report 7969321-X (Version None)
Quarter: 2011Q4

REPORT INFORMATION
  Report Type: 
  Country: None (occurrence: None)
  Receive Date: 20111209
  Receipt Date: 20111202
  Transmission Date: 20120403
  Serious: Yes (Other)
  Sender: FDA-Public Use
  Company Number: US-ASTRAZENECA-2011SE48552

PATIENT
  Age: 80 Year
  Sex: Female

DRUGS (1)
  1. TOPROL-XL [Suspect]
     Route: 048

REACTIONS (5)
  - LOWER LIMB FRACTURE [None]
  - GOUT [None]
  - COUGH [None]
  - CARDIAC DISORDER [None]
  - DRUG DOSE OMISSION [None]
